FAERS Safety Report 6683929-3 (Version None)
Quarter: 2010Q2

REPORT INFORMATION
  Report Type: 
  Country: None (occurrence: None)
  Receive Date: 20100416
  Receipt Date: 20100406
  Transmission Date: 20101027
  Serious: Yes (Death, Hospitalization)
  Sender: FDA-Public Use
  Company Number: FR-PFIZER INC-2009190911

PATIENT
  Age: 83 Year
  Sex: Male

DRUGS (7)
  1. HYDROXYZINE HCL [Suspect]
     Dosage: UNK
     Route: 048
     Dates: end: 20090101
  2. GALANTAMINE [Suspect]
     Dosage: 8 MG, UNK
     Route: 048
     Dates: end: 20090101
  3. GALANTAMINE [Suspect]
     Dosage: UNK
     Route: 048
     Dates: end: 20090101
  4. CLOBAZAM [Suspect]
     Dosage: 5 MG, UNK
     Route: 048
     Dates: end: 20090101
  5. EUPHYLLINE [Concomitant]
  6. SERETIDE [Concomitant]
  7. VENTOLIN [Concomitant]

REACTIONS (4)
  - DECREASED APPETITE [None]
  - FALL [None]
  - GENERAL PHYSICAL HEALTH DETERIORATION [None]
  - OVERDOSE [None]
